FAERS Safety Report 15215573 (Version 1)
Quarter: 2018Q3

REPORT INFORMATION
  Report Type: Spontaneous
  Country: US (occurrence: US)
  Receive Date: 20180703
  Receipt Date: 20180703
  Transmission Date: 20181010
  Serious: Yes (Disabling, Other)
  Sender: FDA-Public Use
  Company Number: None

PATIENT
  Age: 56 Year
  Sex: Female

DRUGS (2)
  1. FLUTICASO E PROPIONATE NASAL SPRAY USP; NDC# 60505?0829?1LOT# NJ4501 [Suspect]
     Active Substance: FLUTICASONE PROPIONATE
     Indication: EAR INFECTION
     Dosage: ?          QUANTITY:2 SPRAY(S);?
     Route: 045
     Dates: start: 20180416, end: 20180609
  2. LISINOPRIL. [Concomitant]
     Active Substance: LISINOPRIL

REACTIONS (5)
  - Dizziness [None]
  - Hypoacusis [None]
  - Nasal congestion [None]
  - Nasal inflammation [None]
  - Headache [None]

NARRATIVE: CASE EVENT DATE: 20180524
